FAERS Safety Report 14628181 (Version 1)
Quarter: 2018Q1

REPORT INFORMATION
  Report Type: Spontaneous
  Country: US (occurrence: US)
  Receive Date: 20180312
  Receipt Date: 20180312
  Transmission Date: 20180509
  Serious: Yes (Other)
  Sender: FDA-Public Use
  Company Number: US-ALLERGAN-1748358US

PATIENT
  Age: 63 Year
  Sex: Female

DRUGS (2)
  1. ESTRACE [Suspect]
     Active Substance: ESTRADIOL
     Indication: PRODUCT USED FOR UNKNOWN INDICATION
     Dosage: UNK UNK, Q WEEK
     Route: 065
     Dates: start: 201310, end: 20150302
  2. ESTRACE [Suspect]
     Active Substance: ESTRADIOL
     Dosage: UNK, BI-WEEKLY
     Route: 065
     Dates: start: 20150303, end: 20150715

REACTIONS (3)
  - Uterine prolapse [Unknown]
  - Contraindicated drug prescribed [Unknown]
  - Ovarian cancer stage III [Unknown]
